FAERS Safety Report 19868806 (Version 1)
Quarter: 2021Q3

REPORT INFORMATION
  Report Type: Spontaneous
  Country: IN (occurrence: IN)
  Receive Date: 20210922
  Receipt Date: 20210922
  Transmission Date: 20211014
  Serious: Yes (Death)
  Sender: FDA-Public Use
  Company Number: IN-PFIZER INC-2018455359

PATIENT
  Age: 74 Year
  Sex: Female

DRUGS (1)
  1. CRIZALK [Suspect]
     Active Substance: CRIZOTINIB
     Indication: NEOPLASM
     Dosage: 250 MG, 2X/DAY
     Route: 048
     Dates: start: 20180413

REACTIONS (1)
  - Myocardial infarction [Fatal]
